FAERS Safety Report 7231244-1 (Version None)
Quarter: 2011Q1

REPORT INFORMATION
  Report Type: 
  Country: None (occurrence: None)
  Receive Date: 20110118
  Receipt Date: 20110111
  Transmission Date: 20110831
  Serious: Yes (Life-Threatening, Hospitalization)
  Sender: FDA-Public Use
  Company Number: B0693984A

PATIENT
  Age: 35 Year
  Sex: Male

DRUGS (2)
  1. ROCEPHIN [Concomitant]
  2. CEFUROXIME [Suspect]
     Indication: SELF-MEDICATION
     Route: 048

REACTIONS (3)
  - CARDIOVASCULAR INSUFFICIENCY [None]
  - ANAPHYLACTIC REACTION [None]
  - HYPOXIC-ISCHAEMIC ENCEPHALOPATHY [None]
